FAERS Safety Report 18546562 (Version 2)
Quarter: 2021Q4

REPORT INFORMATION
  Report Type: Spontaneous
  Country: KR (occurrence: KR)
  Receive Date: 20201125
  Receipt Date: 20211013
  Transmission Date: 20220303
  Serious: Yes (Death, Hospitalization, Other)
  Sender: FDA-Public Use
  Company Number: KR-GILEAD-2020-0505933

PATIENT
  Sex: Female

DRUGS (44)
  1. VEKLURY [Suspect]
     Active Substance: REMDESIVIR
     Indication: COVID-19
     Dosage: 100 MG
     Route: 042
     Dates: start: 20201116, end: 20201120
  2. NOVORAPID [Concomitant]
     Active Substance: INSULIN ASPART
     Dosage: UNK
     Dates: start: 20201112, end: 20201120
  3. URSODIOL [Concomitant]
     Active Substance: URSODIOL
     Dosage: UNK
     Dates: start: 20201112, end: 20201121
  4. PROPRANOLOL HYDROCHLORIDE [Concomitant]
     Active Substance: PROPRANOLOL HYDROCHLORIDE
     Dosage: UNK
     Dates: start: 20201112, end: 20201121
  5. BEECOM [Concomitant]
     Dosage: UNK
     Dates: start: 20201112, end: 20201121
  6. GLIPTIDE [Concomitant]
     Dosage: UNK
     Dates: start: 20201112, end: 20201121
  7. NOLTEC [Concomitant]
     Dosage: UNK
     Dates: start: 20201112, end: 20201121
  8. DEXID [Concomitant]
     Dosage: UNK
     Dates: start: 20201112, end: 20201121
  9. ZEMIGLO [Concomitant]
     Dosage: UNK
     Dates: start: 20201112, end: 20201121
  10. AMARYL [Concomitant]
     Active Substance: GLIMEPIRIDE
     Dosage: UNK
     Dates: start: 20201112, end: 20201121
  11. DIABEX [Concomitant]
     Active Substance: METFORMIN HYDROCHLORIDE
     Dosage: UNK
     Dates: start: 20201113, end: 20201121
  12. PHAZYME [AMYLASE;LIPASE;PROTEASE NOS;SIMETICONE] [Concomitant]
     Dosage: UNK
     Dates: start: 20201113, end: 20201121
  13. Paracay [Concomitant]
     Dosage: UNK
     Dates: start: 20201114, end: 20201114
  14. TACENOL [Concomitant]
     Dosage: UNK
     Dates: start: 20201115, end: 20201116
  15. DEXAMETHASONE [Concomitant]
     Active Substance: DEXAMETHASONE
     Dosage: UNK
     Dates: start: 20201116, end: 20201121
  16. ALBUMIN HUMAN [Concomitant]
     Active Substance: ALBUMIN HUMAN
     Dosage: UNK
     Dates: start: 20201116, end: 20201122
  17. LASIX [Concomitant]
     Active Substance: FUROSEMIDE
     Dosage: UNK
     Dates: start: 20201116, end: 20201119
  18. CEFUROXIME [Concomitant]
     Active Substance: CEFUROXIME
     Dosage: UNK
     Dates: start: 20201116, end: 20201121
  19. ALDACTONE [Concomitant]
     Active Substance: SPIRONOLACTONE
     Dosage: UNK
     Dates: start: 20201116, end: 20201121
  20. ATACAND [Concomitant]
     Active Substance: CANDESARTAN CILEXETIL
     Dosage: UNK
     Dates: start: 20201116, end: 20201121
  21. TRAMADOL HYDROCHLORIDE [Concomitant]
     Active Substance: TRAMADOL HYDROCHLORIDE
     Dosage: UNK
     Dates: start: 20201116
  22. SODIUM CHLORIDE [Concomitant]
     Active Substance: SODIUM CHLORIDE
     Dosage: UNK
     Dates: start: 20201117, end: 20201122
  23. PHOSTEN [Concomitant]
     Dosage: UNK
     Dates: start: 20201118, end: 20201118
  24. DEXTROSE [Concomitant]
     Active Substance: DEXTROSE
     Dosage: UNK
     Dates: start: 20201118, end: 20201122
  25. TRESIBA [Concomitant]
     Active Substance: INSULIN DEGLUDEC
     Dosage: UNK
     Dates: start: 20201118, end: 20201120
  26. DUPHALAC [Concomitant]
     Active Substance: LACTULOSE
     Dosage: UNK
     Dates: start: 20201121, end: 20201121
  27. DEXTROSE [Concomitant]
     Active Substance: DEXTROSE
     Dosage: UNK
     Dates: start: 20201121, end: 20201121
  28. PENIRAMIN [Concomitant]
     Dosage: UNK
     Dates: start: 20201121, end: 20201122
  29. RIFAXIMIN [Concomitant]
     Active Substance: RIFAXIMIN
     Dosage: UNK
     Dates: start: 20201121, end: 20201121
  30. PLATELETS [Concomitant]
     Active Substance: HUMAN PLATELET, ALLOGENIC
     Dosage: UNK
     Dates: start: 20201121, end: 20201122
  31. TAPOCIN [Concomitant]
     Dosage: UNK
     Dates: start: 20201121, end: 20201122
  32. PIPERACILLIN SODIUM\TAZOBACTAM SODIUM [Concomitant]
     Active Substance: PIPERACILLIN SODIUM\TAZOBACTAM SODIUM
     Dosage: UNK
     Dates: start: 20201121, end: 20201122
  33. SODIUM BICARBONATE [Concomitant]
     Active Substance: SODIUM BICARBONATE
     Dosage: UNK
     Dates: start: 20201121, end: 20201122
  34. HYDROCORTISONE SODIUM SUCCINATE [Concomitant]
     Active Substance: HYDROCORTISONE SODIUM SUCCINATE
     Dosage: UNK
     Dates: start: 20201121, end: 20201122
  35. AMMONIA [Concomitant]
     Active Substance: AMMONIA
     Dosage: UNK
     Dates: start: 20201122, end: 20201122
  36. HUMAN PLASMA [Concomitant]
     Active Substance: HUMAN PLASMA
     Dosage: UNK
     Dates: start: 20201122, end: 20201122
  37. HEPARIN [Concomitant]
     Active Substance: HEPARIN SODIUM
     Dosage: UNK
     Dates: start: 20201122, end: 20201122
  38. NORPIN [BUPRENORPHINE HYDROCHLORIDE] [Concomitant]
     Dosage: UNK
     Dates: start: 20201122, end: 20201122
  39. CELLPENEM [Concomitant]
     Dosage: UNK
     Dates: start: 20201122, end: 20201122
  40. TERLIPRESSIN [Concomitant]
     Active Substance: TERLIPRESSIN
     Dosage: UNK
     Dates: start: 20201122, end: 20201122
  41. MENATAN [Concomitant]
     Dosage: UNK
     Dates: start: 20201122, end: 20201122
  42. MULTIBIC [Concomitant]
     Active Substance: CALCIUM CHLORIDE\DEXTROSE\MAGNESIUM CHLORIDE\SODIUM BICARBONATE\SODIUM CHLORIDE
     Dosage: UNK
     Dates: start: 20201122, end: 20201122
  43. DEXTROSE [Concomitant]
     Active Substance: DEXTROSE
     Dosage: UNK
     Dates: start: 20201122, end: 20201122
  44. VASOPRESSIN [Concomitant]
     Active Substance: VASOPRESSIN
     Dosage: UNK
     Dates: start: 20201122, end: 20201122

REACTIONS (2)
  - Septic shock [Fatal]
  - Death [Fatal]
